FAERS Safety Report 14143826 (Version 1)
Quarter: 2017Q4

REPORT INFORMATION
  Report Type: Spontaneous
  Country: RU (occurrence: RU)
  Receive Date: 20171031
  Receipt Date: 20171031
  Transmission Date: 20180321
  Serious: Yes (Hospitalization, Other)
  Sender: FDA-Public Use
  Company Number: RU-ASTRAZENECA-2017SF09462

PATIENT
  Age: 74 Year
  Sex: Female
  Weight: 95 kg

DRUGS (8)
  1. ATORIS [Concomitant]
     Active Substance: ATORVASTATIN CALCIUM
  2. LAZIX [Concomitant]
  3. THROMBO ASS [Concomitant]
     Active Substance: ASPIRIN
  4. CARVEDILOL. [Concomitant]
     Active Substance: CARVEDILOL
  5. DIUVER [Concomitant]
     Active Substance: TORSEMIDE
  6. BRILINTA [Suspect]
     Active Substance: TICAGRELOR
     Indication: PULMONARY OEDEMA
     Route: 048
     Dates: start: 20170804, end: 20171016
  7. INSULIN [Concomitant]
     Active Substance: INSULIN NOS
  8. VEROSHPIRON [Concomitant]

REACTIONS (2)
  - Off label use [Recovered/Resolved]
  - Pulmonary oedema [Recovered/Resolved]

NARRATIVE: CASE EVENT DATE: 20170804
